FAERS Safety Report 7808647 (Version 4)
Quarter: 2013Q3

REPORT INFORMATION
  Report Type: Report from Study
  Country: MX (occurrence: MX)
  Receive Date: 20110211
  Receipt Date: 20130718
  Transmission Date: 20140515
  Serious: Yes (Hospitalization, Other)
  Sender: FDA-Public Use
  Company Number: MX-BRISTOL-MYERS SQUIBB COMPANY-15534233

PATIENT
  Age: 42 Year
  Sex: Male

DRUGS (5)
  1. SAXAGLIPTIN [Suspect]
     Indication: TYPE 2 DIABETES MELLITUS
     Dosage: LAST DOSE:27JAN2013
     Dates: start: 20101016
  2. METFORMIN HCL [Suspect]
     Indication: TYPE 2 DIABETES MELLITUS
  3. GLIBENCLAMIDE [Suspect]
     Indication: TYPE 2 DIABETES MELLITUS
     Dosage: BR-12JAN2012:3MG?13JAN12-CONT:5MG
  4. NPH INSULIN [Suspect]
     Indication: TYPE 2 DIABETES MELLITUS
     Dates: end: 20110214
  5. ASPIRIN [Concomitant]

REACTIONS (1)
  - Oesophageal candidiasis [Recovering/Resolving]
